FAERS Safety Report 7350063-9 (Version None)
Quarter: 2011Q1

REPORT INFORMATION
  Report Type: 
  Country: None (occurrence: None)
  Receive Date: 20110314
  Receipt Date: 20110303
  Transmission Date: 20110831
  Serious: Yes (Death, Other)
  Sender: FDA-Public Use
  Company Number: US-ELI_LILLY_AND_COMPANY-US201007003957

PATIENT
  Sex: Female

DRUGS (2)
  1. TRAMADOL [Concomitant]
  2. CYMBALTA [Suspect]
     Dosage: 60 MG, UNKNOWN
     Route: 065

REACTIONS (3)
  - SEROTONIN SYNDROME [None]
  - DEATH [None]
  - DRUG INTERACTION [None]
